FAERS Safety Report 5209104-7 (Version None)
Quarter: 2006Q4

REPORT INFORMATION
  Report Type: 
  Country: None (occurrence: None)
  Receive Date: 20061228
  Receipt Date: 20061215
  Transmission Date: 20070319
  Serious: Yes (Hospitalization)
  Sender: FDA-Public Use
  Company Number: THYM-11186

PATIENT
  Age: 38 Year
  Sex: Female

DRUGS (3)
  1. THYMOGLOBULIN [Suspect]
     Indication: COMPLICATIONS OF TRANSPLANTED KIDNEY
  2. CELLCEPT [Concomitant]
  3. PROGRAF [Concomitant]

REACTIONS (7)
  - COMPLICATIONS OF TRANSPLANTED KIDNEY [None]
  - DIALYSIS [None]
  - GRAFT THROMBOSIS [None]
  - INFLAMMATION [None]
  - RENAL FAILURE ACUTE [None]
  - SERUM SICKNESS [None]
  - THROMBOCYTOPENIA [None]
